FAERS Safety Report 5816535 (Version 5)
Quarter: 2020Q3

REPORT INFORMATION
  Report Type: Report from Study
  Country: DE (occurrence: DE)
  Receive Date: 20050610
  Receipt Date: 20060403
  Transmission Date: 20201104
  Serious: Yes (Death, Life-Threatening)
  Sender: FDA-Public Use
  Company Number: DE-JNJFOC-20050503959

PATIENT
  Age: 48 Year
  Sex: Male

DRUGS (3)
  1. REOPRO [Suspect]
     Active Substance: ABCIXIMAB
     Route: 042
  2. REOPRO [Suspect]
     Active Substance: ABCIXIMAB
     Route: 042
  3. ASA [Concomitant]
     Active Substance: ASPIRIN
     Route: 048

REACTIONS (9)
  - Haemorrhagic transformation stroke [Fatal]
  - Hypertension [None]
  - Haemoglobin decreased [None]
  - Haematocrit decreased [None]
  - Leukocytosis [None]
  - Bradycardia [None]
  - Hyperhidrosis [None]
  - Coma [None]
  - Pneumonia [None]

NARRATIVE: CASE EVENT DATE: 20050513
